FAERS Safety Report 6015719-9 (Version None)
Quarter: 2008Q4

REPORT INFORMATION
  Report Type: 
  Country: None (occurrence: None)
  Receive Date: 20081216
  Receipt Date: 20050418
  Transmission Date: 20090506
  Serious: Yes (Other)
  Sender: FDA-Public Use
  Company Number: HQWYE124819APR05

PATIENT
  Sex: Male

DRUGS (2)
  1. EFFEXOR XR [Suspect]
     Indication: ANXIETY
     Dosage: 150 MG 1X PER 1 DAY, TRANSMAMMARY
     Route: 063
     Dates: start: 20050410
  2. EFFEXOR XR [Suspect]
     Dosage: 150 MG 1X PER 1 DAY, TRANSPLACENTAL
     Route: 064
     Dates: end: 20050410

REACTIONS (4)
  - ASTHENOPIA [None]
  - DRUG EXPOSURE VIA BREAST MILK [None]
  - NIGHT SWEATS [None]
  - PREMATURE BABY [None]
